FAERS Safety Report 7031242-7 (Version None)
Quarter: 2010Q4

REPORT INFORMATION
  Report Type: 
  Country: None (occurrence: None)
  Receive Date: 20101006
  Receipt Date: 20101005
  Transmission Date: 20110411
  Serious: Yes (Hospitalization)
  Sender: FDA-Public Use
  Company Number: A0862626A

PATIENT
  Age: 45 Year
  Sex: Female
  Weight: 68.2 kg

DRUGS (1)
  1. TREXIMET [Suspect]
     Indication: HEADACHE
     Dosage: 1TAB AS DIRECTED
     Route: 048

REACTIONS (1)
  - HEADACHE [None]
